FAERS Safety Report 11360071 (Version 1)
Quarter: 2015Q3

REPORT INFORMATION
  Report Type: Report from Study
  Country: US (occurrence: US)
  Receive Date: 20150810
  Receipt Date: 20150810
  Transmission Date: 20151125
  Serious: Yes (Hospitalization, Other)
  Sender: FDA-Public Use
  Company Number: US-GILEAD-2015-0166749

PATIENT
  Age: 47 Year
  Sex: Female

DRUGS (9)
  1. AMBRISENTAN [Suspect]
     Active Substance: AMBRISENTAN
     Indication: PULMONARY ARTERIAL HYPERTENSION
     Dosage: 10 MG, QD
     Route: 065
     Dates: start: 20071127
  2. BYSTOLIC [Concomitant]
     Active Substance: NEBIVOLOL HYDROCHLORIDE
  3. EPZICOM [Concomitant]
     Active Substance: ABACAVIR SULFATE\LAMIVUDINE
  4. LASIX [Concomitant]
     Active Substance: FUROSEMIDE
  5. COUMADIN [Concomitant]
     Active Substance: WARFARIN SODIUM
  6. VICODIN [Concomitant]
     Active Substance: ACETAMINOPHEN\HYDROCODONE BITARTRATE
  7. ISENTRESS [Concomitant]
     Active Substance: RALTEGRAVIR POTASSIUM
  8. PROCARDIA [Concomitant]
     Active Substance: NIFEDIPINE
  9. POTASSIUM [Concomitant]
     Active Substance: POTASSIUM

REACTIONS (1)
  - Gallbladder operation [Recovered/Resolved]

NARRATIVE: CASE EVENT DATE: 20150728
